FAERS Safety Report 25886831 (Version 1)
Quarter: 2025Q4

REPORT INFORMATION
  Report Type: Spontaneous
  Country: US (occurrence: None)
  Receive Date: 20251006
  Receipt Date: 20251006
  Transmission Date: 20260118
  Serious: Yes (Other)
  Sender: FDA-CTU
  Company Number: None

PATIENT
  Age: 49 Year
  Sex: Male
  Weight: 62.55 kg

DRUGS (2)
  1. GAMUNEX-C [Suspect]
     Active Substance: HUMAN IMMUNOGLOBULIN G
     Indication: Demyelinating polyneuropathy
     Dosage: 62 G GRAM(S) EVERY 3 WEEKS INTRAVENOUS
     Route: 042
     Dates: start: 20231004
  2. GAMUNEX-C [Suspect]
     Active Substance: HUMAN IMMUNOGLOBULIN G
     Dosage: 62 G GRAM(S) EVERY 3 WEEKS INTRAVENOUS?
     Route: 042

REACTIONS (6)
  - Injection site pruritus [None]
  - Injection site erythema [None]
  - Injection site swelling [None]
  - Liver function test increased [None]
  - Alanine aminotransferase increased [None]
  - Serum ferritin increased [None]

NARRATIVE: CASE EVENT DATE: 20251001
